FAERS Safety Report 19968883 (Version 1)
Quarter: 2021Q4

REPORT INFORMATION
  Report Type: Spontaneous
  Country: US (occurrence: US)
  Receive Date: 20211019
  Receipt Date: 20211019
  Transmission Date: 20220303
  Serious: No
  Sender: FDA-Public Use
  Company Number: US-PFIZER INC-2021727018

PATIENT
  Age: 43 Year
  Sex: Female
  Weight: 49.9 kg

DRUGS (3)
  1. IBRANCE [Suspect]
     Active Substance: PALBOCICLIB
     Indication: Breast cancer stage IV
     Dosage: 125 MG, CYCLIC 21 DAYS ON AND 7 DAYS OFF
     Dates: start: 20210210
  2. ZOMETA [Suspect]
     Active Substance: ZOLEDRONIC ACID
     Indication: Breast cancer stage IV
     Dosage: UNK UNK, MONTHLY (INFUSION ONCE A MONTH)
     Dates: start: 20210210
  3. ELIGARD [Suspect]
     Active Substance: LEUPROLIDE ACETATE
     Indication: Breast cancer stage IV
     Dosage: 7.5MG INFUSION ONCE A MONTH
     Dates: start: 20210210

REACTIONS (8)
  - Pain [Unknown]
  - Arthralgia [Unknown]
  - Libido decreased [Unknown]
  - Mood swings [Unknown]
  - Depression [Unknown]
  - Somnolence [Not Recovered/Not Resolved]
  - Hot flush [Not Recovered/Not Resolved]
  - Bone pain [Unknown]

NARRATIVE: CASE EVENT DATE: 20210101
